FAERS Safety Report 19515521 (Version 6)
Quarter: 2024Q1

REPORT INFORMATION
  Report Type: Spontaneous
  Country: NL (occurrence: NL)
  Receive Date: 20210709
  Receipt Date: 20240321
  Transmission Date: 20240410
  Serious: Yes (Death, Life-Threatening, Hospitalization)
  Sender: FDA-Public Use
  Company Number: NL-CELGENE-NLD-20210603381

PATIENT
  Age: 59 Year
  Sex: Male

DRUGS (59)
  1. DEXAMETHASONE [Suspect]
     Active Substance: DEXAMETHASONE
     Indication: Plasma cell myeloma
     Route: 065
     Dates: start: 20210220, end: 20210322
  2. DEXAMETHASONE [Suspect]
     Active Substance: DEXAMETHASONE
     Route: 065
     Dates: start: 20210304, end: 20210308
  3. DEXAMETHASONE [Suspect]
     Active Substance: DEXAMETHASONE
     Route: 065
     Dates: start: 20210309, end: 20210313
  4. DEXAMETHASONE [Suspect]
     Active Substance: DEXAMETHASONE
     Route: 065
     Dates: start: 20210314, end: 20210322
  5. DEXAMETHASONE [Suspect]
     Active Substance: DEXAMETHASONE
     Dosage: 6 MILLIGRAM
     Route: 065
     Dates: start: 20210610, end: 20210611
  6. DEXAMETHASONE [Suspect]
     Active Substance: DEXAMETHASONE
     Indication: Plasma cell myeloma
     Route: 048
     Dates: start: 20210607, end: 20210607
  7. DEXAMETHASONE [Suspect]
     Active Substance: DEXAMETHASONE
     Indication: Prophylaxis
  8. ISATUXIMAB [Suspect]
     Active Substance: ISATUXIMAB
     Indication: Plasma cell myeloma
     Route: 042
     Dates: start: 20210607, end: 20210607
  9. LENALIDOMIDE [Suspect]
     Active Substance: LENALIDOMIDE
     Indication: Plasma cell myeloma
     Route: 048
     Dates: start: 20210607, end: 20210610
  10. CARFILZOMIB [Suspect]
     Active Substance: CARFILZOMIB
     Indication: Plasma cell myeloma
     Route: 042
     Dates: start: 20210607, end: 20210607
  11. COTRIMOXAZOLE [Concomitant]
     Active Substance: SULFAMETHOXAZOLE\TRIMETHOPRIM
     Indication: Prophylaxis
     Dates: start: 20210322, end: 20210523
  12. COTRIMOXAZOLE [Concomitant]
     Active Substance: SULFAMETHOXAZOLE\TRIMETHOPRIM
     Route: 065
     Dates: start: 20210322, end: 20210523
  13. ZOLEDRONIC ACID [Concomitant]
     Active Substance: ZOLEDRONIC ACID
     Indication: Prophylaxis
     Route: 065
     Dates: start: 20210329
  14. ZOLEDRONIC ACID [Concomitant]
     Active Substance: ZOLEDRONIC ACID
     Route: 065
     Dates: start: 20210315
  15. CARBASPIRIN CALCIUM [Concomitant]
     Active Substance: CARBASPIRIN CALCIUM
     Indication: Prophylaxis
     Route: 065
     Dates: start: 20210315, end: 20210708
  16. IRBESARTAN [Concomitant]
     Active Substance: IRBESARTAN
     Indication: Chronic obstructive pulmonary disease
     Route: 065
     Dates: start: 20210218, end: 20210613
  17. IRBESARTAN [Concomitant]
     Active Substance: IRBESARTAN
     Indication: Bone pain
  18. IRBESARTAN [Concomitant]
     Active Substance: IRBESARTAN
     Indication: Peripheral motor neuropathy
  19. IRBESARTAN [Concomitant]
     Active Substance: IRBESARTAN
     Indication: Hypertension
  20. IRBESARTAN [Concomitant]
     Active Substance: IRBESARTAN
     Indication: Peripheral sensory neuropathy
  21. ACETAMINOPHEN [Concomitant]
     Active Substance: ACETAMINOPHEN
     Indication: Bone pain
     Route: 065
     Dates: start: 20210406, end: 20210406
  22. ACETAMINOPHEN [Concomitant]
     Active Substance: ACETAMINOPHEN
     Indication: Prophylaxis
     Route: 065
     Dates: start: 20210412
  23. ACETAMINOPHEN [Concomitant]
     Active Substance: ACETAMINOPHEN
     Indication: Peripheral sensory neuropathy
     Route: 065
     Dates: start: 20210520
  24. ACETAMINOPHEN [Concomitant]
     Active Substance: ACETAMINOPHEN
     Indication: Hypertension
     Route: 065
     Dates: start: 20210329, end: 20210329
  25. ACETAMINOPHEN [Concomitant]
     Active Substance: ACETAMINOPHEN
     Indication: Chronic obstructive pulmonary disease
     Route: 065
     Dates: start: 20210218
  26. ACETAMINOPHEN [Concomitant]
     Active Substance: ACETAMINOPHEN
     Indication: Peripheral motor neuropathy
     Route: 065
     Dates: start: 20210315, end: 20210315
  27. ACETAMINOPHEN [Concomitant]
     Active Substance: ACETAMINOPHEN
     Route: 065
     Dates: start: 20210322, end: 20210322
  28. OXYCODONE [Concomitant]
     Active Substance: OXYCODONE\OXYCODONE HYDROCHLORIDE
     Indication: Bone pain
     Dosage: DOSE: 6 (UNKNOWN UNIT)
     Route: 065
     Dates: start: 20210223, end: 20210223
  29. OXYCODONE [Concomitant]
     Active Substance: OXYCODONE\OXYCODONE HYDROCHLORIDE
     Indication: Prophylaxis
     Dosage: DOSE: 6 (UNKNOWN UNIT)
     Route: 065
     Dates: start: 20210223, end: 20210303
  30. OXYCODONE [Concomitant]
     Active Substance: OXYCODONE\OXYCODONE HYDROCHLORIDE
     Dosage: DOSE: 6 (UNKNOWN UNIT)
     Route: 065
     Dates: start: 20210310, end: 20210520
  31. INDACATEROL/GLYCOPYRRONIUM [Concomitant]
     Indication: Bone pain
  32. INDACATEROL/GLYCOPYRRONIUM [Concomitant]
     Indication: Hypertension
     Route: 065
     Dates: start: 20210218
  33. INDACATEROL/GLYCOPYRRONIUM [Concomitant]
     Indication: Peripheral sensory neuropathy
  34. INDACATEROL/GLYCOPYRRONIUM [Concomitant]
     Indication: Chronic obstructive pulmonary disease
  35. INDACATEROL/GLYCOPYRRONIUM [Concomitant]
     Indication: Peripheral motor neuropathy
  36. FUROSEMIDE [Concomitant]
     Active Substance: FUROSEMIDE
     Indication: Oedema
     Route: 065
     Dates: start: 20210329, end: 20210613
  37. FUROSEMIDE [Concomitant]
     Active Substance: FUROSEMIDE
     Route: 065
     Dates: start: 20210613, end: 20210706
  38. FLUTICASONE FUROATE [Concomitant]
     Active Substance: FLUTICASONE FUROATE
     Indication: Chronic obstructive pulmonary disease
  39. FLUTICASONE FUROATE [Concomitant]
     Active Substance: FLUTICASONE FUROATE
     Indication: Peripheral motor neuropathy
     Dosage: 27.5 UG (DOSE: 1 UNIT UNKNOWN)
     Route: 045
     Dates: start: 20210610, end: 20210613
  40. FLUTICASONE FUROATE [Concomitant]
     Active Substance: FLUTICASONE FUROATE
     Indication: Peripheral sensory neuropathy
     Route: 045
     Dates: start: 20210218
  41. FLUTICASONE FUROATE [Concomitant]
     Active Substance: FLUTICASONE FUROATE
     Indication: Hypertension
  42. FLUTICASONE FUROATE [Concomitant]
     Active Substance: FLUTICASONE FUROATE
     Indication: Bone pain
  43. FLUTICASONE FUROATE [Concomitant]
     Active Substance: FLUTICASONE FUROATE
     Indication: Product used for unknown indication
  44. CLEMASTINE [Concomitant]
     Active Substance: CLEMASTINE
     Indication: Prophylaxis
     Dosage: DOSE: 3 (UNKNOWN UNIT)
     Route: 065
     Dates: start: 20210526, end: 20210526
  45. CLEMASTINE [Concomitant]
     Active Substance: CLEMASTINE
     Indication: Rash maculo-papular
     Route: 065
     Dates: start: 20210315, end: 20210315
  46. CLEMASTINE [Concomitant]
     Active Substance: CLEMASTINE
     Route: 065
     Dates: start: 20210406, end: 20210406
  47. CLEMASTINE [Concomitant]
     Active Substance: CLEMASTINE
     Route: 065
     Dates: start: 20210322, end: 20210322
  48. CLEMASTINE [Concomitant]
     Active Substance: CLEMASTINE
     Route: 065
     Dates: start: 20210329, end: 20210329
  49. CLEMASTINE [Concomitant]
     Active Substance: CLEMASTINE
     Route: 065
     Dates: start: 20210412, end: 20210412
  50. NADROPARIN [Concomitant]
     Active Substance: NADROPARIN
     Indication: Prophylaxis
     Route: 065
     Dates: start: 20210218, end: 20210224
  51. VALACYCLOVIR HYDROCHLORIDE [Concomitant]
     Active Substance: VALACYCLOVIR HYDROCHLORIDE
     Indication: Prophylaxis
     Route: 065
     Dates: start: 20210315, end: 20210610
  52. PANTOPRAZOLE [Concomitant]
     Active Substance: PANTOPRAZOLE
     Indication: Prophylaxis
     Dates: start: 20210218
  53. PANTOPRAZOLE [Concomitant]
     Active Substance: PANTOPRAZOLE
     Indication: SARS-CoV-2 sepsis
     Route: 065
     Dates: start: 20210218, end: 20210613
  54. PANTOPRAZOLE [Concomitant]
     Active Substance: PANTOPRAZOLE
     Dosage: 40 MILLIGRAM
     Route: 065
     Dates: start: 20210612, end: 20210708
  55. FLUCONAZOLE [Concomitant]
     Active Substance: FLUCONAZOLE
     Indication: Prophylaxis
     Route: 065
     Dates: start: 20210315, end: 20210607
  56. RASBURICASE [Concomitant]
     Active Substance: RASBURICASE
     Indication: Prophylaxis
     Route: 065
     Dates: start: 20210315, end: 20210315
  57. MAGNESIUM GLUCONATE [Concomitant]
     Active Substance: MAGNESIUM GLUCONATE
     Indication: Atrial fibrillation
     Route: 065
     Dates: start: 20210503
  58. TOCILIZUMAB [Concomitant]
     Active Substance: TOCILIZUMAB
     Indication: Product used for unknown indication
     Route: 065
     Dates: start: 20210610, end: 20210610
  59. GLYCEROFOSFOR ACID [Concomitant]
     Indication: Product used for unknown indication
     Dosage: 20 MML
     Route: 065
     Dates: start: 20210612, end: 20210702

REACTIONS (1)
  - SARS-CoV-2 sepsis [Fatal]

NARRATIVE: CASE EVENT DATE: 20210610
